FAERS Safety Report 5408871-7 (Version None)
Quarter: 2007Q3

REPORT INFORMATION
  Report Type: 
  Country: None (occurrence: None)
  Receive Date: 20070808
  Receipt Date: 20070803
  Transmission Date: 20080115
  Serious: Yes (Other)
  Sender: FDA-Public Use
  Company Number: US-BOEHRINGER INGELHEIM PHARMACEUTICALS, INC.-2007-BP-07610PF

PATIENT
  Sex: Male
  Weight: 99.79 kg

DRUGS (6)
  1. SPIRIVA [Suspect]
  2. CHANTIX [Suspect]
     Indication: SMOKING CESSATION THERAPY
     Dates: start: 20070115, end: 20070503
  3. NEXIUM [Concomitant]
  4. FLONASE [Concomitant]
  5. ZYRTEC-D [Concomitant]
  6. UNSPECIFIED BLOOD PRESSURE MEDICINE [Concomitant]

REACTIONS (6)
  - CHRONIC OBSTRUCTIVE PULMONARY DISEASE [None]
  - EMPHYSEMA [None]
  - FEELING ABNORMAL [None]
  - FLATULENCE [None]
  - PELVIC FRACTURE [None]
  - VASCULAR GRAFT [None]
